FAERS Safety Report 10445438 (Version 2)
Quarter: 2014Q3

REPORT INFORMATION
  Report Type: Spontaneous
  Country: FI (occurrence: FI)
  Receive Date: 20140910
  Receipt Date: 20140910
  Transmission Date: 20150326
  Serious: Yes (Hospitalization, Other)
  Sender: FDA-Public Use
  Company Number: FI-ROCHE-1447289

PATIENT
  Age: 62 Year
  Sex: Female

DRUGS (15)
  1. HERCEPTIN [Suspect]
     Active Substance: TRASTUZUMAB
     Route: 065
     Dates: start: 20140609
  2. LYRICA [Concomitant]
     Active Substance: PREGABALIN
     Route: 065
     Dates: start: 20140609
  3. SOMAC [Concomitant]
     Active Substance: PANTOPRAZOLE SODIUM
     Dosage: AS NEEDED 40 MG X 1-6
     Route: 065
     Dates: start: 20140702
  4. PRIMPERAN [Concomitant]
     Active Substance: METOCLOPRAMIDE HYDROCHLORIDE
     Dosage: AS NEEDED 10 MG X 1-3
     Route: 065
     Dates: start: 20140702
  5. TYVERB [Concomitant]
     Active Substance: LAPATINIB
     Indication: HER-2 POSITIVE BREAST CANCER
     Route: 065
     Dates: start: 20140808
  6. BURANA [Concomitant]
     Active Substance: IBUPROFEN
     Route: 065
     Dates: start: 20140324
  7. PANADOL FORTE [Concomitant]
     Dosage: AS NEEDED 1 G X 1-3
     Route: 065
     Dates: start: 20140609
  8. PERJETA [Suspect]
     Active Substance: PERTUZUMAB
     Indication: HER-2 POSITIVE BREAST CANCER
     Route: 065
     Dates: start: 20140609
  9. HERCEPTIN [Suspect]
     Active Substance: TRASTUZUMAB
     Indication: HER-2 POSITIVE BREAST CANCER
     Dosage: 9 WEEKS
     Route: 065
     Dates: start: 2008
  10. BISOPROLOL RATIOPHARM [Concomitant]
     Active Substance: BISOPROLOL
     Route: 065
     Dates: start: 20130507
  11. HISTEC [Concomitant]
     Dosage: AS NEEDED, AS PER INSTRUCTIONS
     Route: 065
     Dates: start: 20140609
  12. PERJETA [Suspect]
     Active Substance: PERTUZUMAB
     Route: 065
     Dates: start: 20140630
  13. HERCEPTIN [Suspect]
     Active Substance: TRASTUZUMAB
     Route: 065
     Dates: start: 20140630
  14. VAGIFEM [Concomitant]
     Active Substance: ESTRADIOL
     Route: 065
     Dates: start: 20140502
  15. OXYNORM [Concomitant]
     Active Substance: OXYCODONE HYDROCHLORIDE
     Dosage: AS NEEDED 5 MG X 1-6
     Route: 065
     Dates: start: 20140609

REACTIONS (7)
  - Ejection fraction decreased [Unknown]
  - Fatigue [Recovering/Resolving]
  - Dysstasia [Recovering/Resolving]
  - Horner^s syndrome [Unknown]
  - Cardiac failure [Unknown]
  - Pain [Unknown]
  - N-terminal prohormone brain natriuretic peptide increased [Unknown]

NARRATIVE: CASE EVENT DATE: 20140605
